FAERS Safety Report 23995067 (Version 1)
Quarter: 2024Q2

REPORT INFORMATION
  Report Type: Spontaneous
  Country: US (occurrence: None)
  Receive Date: 20240619
  Receipt Date: 20240619
  Transmission Date: 20240716
  Serious: Yes (Hospitalization)
  Sender: FDA-Public Use
  Company Number: None

PATIENT
  Age: 54 Year
  Sex: Male
  Weight: 89.64 kg

DRUGS (9)
  1. LONSURF [Suspect]
     Active Substance: TIPIRACIL HYDROCHLORIDE\TRIFLURIDINE
     Indication: Colon cancer
     Dosage: 55 MG TWICE A DAY ORAL
     Route: 048
     Dates: start: 20240422
  2. ELIQUIS [Concomitant]
     Active Substance: APIXABAN
  3. otzela 30mg [Concomitant]
  4. prochlorperazine 10mg [Concomitant]
  5. CYMBALTA [Concomitant]
     Active Substance: DULOXETINE HYDROCHLORIDE
  6. ESCITALOPRAM OXALATE [Concomitant]
     Active Substance: ESCITALOPRAM OXALATE
  7. ferrous sulfate 324mg [Concomitant]
  8. VITAMINS [Concomitant]
     Active Substance: VITAMINS
  9. OXYCODONE [Concomitant]
     Active Substance: OXYCODONE\OXYCODONE HYDROCHLORIDE

REACTIONS (2)
  - Disease progression [None]
  - Colon cancer [None]

NARRATIVE: CASE EVENT DATE: 20240609
